FAERS Safety Report 15530810 (Version 7)
Quarter: 2019Q1

REPORT INFORMATION
  Report Type: Report from Study
  Country: JP (occurrence: JP)
  Receive Date: 20181018
  Receipt Date: 20190222
  Transmission Date: 20190417
  Serious: Yes (Hospitalization, Other)
  Sender: FDA-Public Use
  Company Number: JP-BEH-2018095796

PATIENT
  Age: 71 Year
  Sex: Male
  Weight: 74.2 kg

DRUGS (60)
  1. FUNGUARD [Suspect]
     Active Substance: MICAFUNGIN SODIUM
     Indication: OROPHARYNGEAL CANDIDIASIS
     Dosage: UNK
     Route: 065
     Dates: start: 20180808, end: 20180813
  2. ROZEREM [Concomitant]
     Active Substance: RAMELTEON
     Indication: POSTOPERATIVE DELIRIUM
     Dosage: UNK
     Route: 065
     Dates: start: 20180801, end: 20180820
  3. LULICON [Concomitant]
     Active Substance: LULICONAZOLE
     Indication: OROPHARYNGEAL CANDIDIASIS
     Dosage: UNK
     Route: 065
     Dates: start: 20180807
  4. POTASSIUM CHLORIDE. [Concomitant]
     Active Substance: POTASSIUM CHLORIDE
     Indication: PROPHYLAXIS
     Dosage: UNK
     Route: 065
     Dates: start: 20180728, end: 20180730
  5. SIVELESTAT SODIUM [Concomitant]
     Active Substance: SIVELESTAT SODIUM
     Indication: LUNG DISORDER
     Dosage: UNK
     Route: 065
     Dates: start: 20180724, end: 20180726
  6. LANSOPRAZOLE. [Concomitant]
     Active Substance: LANSOPRAZOLE
     Indication: PROPHYLAXIS AGAINST GASTROINTESTINAL ULCER
     Dosage: UNK
     Route: 048
     Dates: start: 20180729, end: 20180820
  7. SOLU-MEDROL [Concomitant]
     Active Substance: METHYLPREDNISOLONE SODIUM SUCCINATE
     Indication: ACUTE RESPIRATORY FAILURE
     Route: 065
  8. FUNGUARD [Suspect]
     Active Substance: MICAFUNGIN SODIUM
     Dosage: UNK
     Route: 065
     Dates: start: 20180818, end: 20180821
  9. GLUCONSAN K [Concomitant]
     Active Substance: POTASSIUM GLUCONATE
     Indication: PROPHYLAXIS
     Dosage: UNK
     Route: 065
     Dates: start: 20180801, end: 20180820
  10. GLUCONSAN K [Concomitant]
     Active Substance: POTASSIUM GLUCONATE
     Indication: HYPOKALAEMIA
  11. RECOMODULIN [Concomitant]
     Active Substance: THROMBOMODULIN ALFA
     Indication: DISSEMINATED INTRAVASCULAR COAGULATION
     Dosage: 6400 IU, UNK
     Route: 065
     Dates: start: 20180727
  12. BROMHEXINE HYDROCHLORIDE [Concomitant]
     Active Substance: BROMHEXINE HYDROCHLORIDE
     Indication: PRODUCTIVE COUGH
     Dosage: UNK
     Route: 065
     Dates: start: 20180723, end: 20180728
  13. NORADRENALINE                      /00127501/ [Concomitant]
     Active Substance: NOREPINEPHRINE
     Indication: HYPOVOLAEMIC SHOCK
     Dosage: UNK
     Route: 065
     Dates: start: 20180724, end: 20180726
  14. BISOPROLOL [Concomitant]
     Active Substance: BISOPROLOL
     Indication: VENTRICULAR EXTRASYSTOLES
  15. AZOSEMIDE [Concomitant]
     Active Substance: AZOSEMIDE
     Dosage: UNK
     Route: 065
     Dates: start: 20180728
  16. BERIPLEX P/N [Suspect]
     Active Substance: COAGULATION FACTOR IX HUMAN\COAGULATION FACTOR VII HUMAN\COAGULATION FACTOR X HUMAN\PROTEIN C\PROTEIN S HUMAN\PROTHROMBIN
     Indication: HAEMORRHAGE
     Dosage: 2000 IU, TOT
     Route: 042
     Dates: start: 20180724
  17. CEFAZOLIN SODIUM. [Concomitant]
     Active Substance: CEFAZOLIN SODIUM
     Indication: INFECTION PROPHYLAXIS
     Dosage: UNK
     Route: 065
     Dates: start: 20180723, end: 20180724
  18. CLINDAMYCIN                        /00166003/ [Concomitant]
     Active Substance: CLINDAMYCIN PHOSPHATE
     Indication: PNEUMONIA ASPIRATION
     Dosage: UNK
     Route: 065
     Dates: start: 20180802, end: 20180810
  19. VOLUVEN [Concomitant]
     Active Substance: HYDROXYETHYL STARCH 130/0.4
     Indication: BLOOD PRESSURE DECREASED
     Dosage: UNK
     Route: 065
     Dates: start: 20180801, end: 20180802
  20. E KEPPRA [Concomitant]
     Active Substance: LEVETIRACETAM
     Indication: PROPHYLAXIS AGAINST BRONCHOSPASM
     Dosage: UNK
     Route: 065
     Dates: start: 20180724, end: 20180726
  21. CEFTRIAXONE SODIUM. [Concomitant]
     Active Substance: CEFTRIAXONE SODIUM
     Indication: ACINETOBACTER INFECTION
  22. FAMOTIDINE. [Concomitant]
     Active Substance: FAMOTIDINE
     Indication: PROPHYLAXIS
  23. DALACIN                            /00166002/ [Suspect]
     Active Substance: CLINDAMYCIN HYDROCHLORIDE
     Indication: PNEUMONIA ASPIRATION
     Dosage: UNK
     Route: 065
     Dates: start: 20180810, end: 20180813
  24. ALBUMIN HUMAN [Concomitant]
     Active Substance: ALBUMIN HUMAN
     Indication: BLOOD PRESSURE DECREASED
     Dosage: UNK
     Route: 065
     Dates: start: 20180801, end: 20180803
  25. L-CARBOCYSTEINE [Concomitant]
     Active Substance: CARBOCYSTEINE
     Indication: PRODUCTIVE COUGH
     Dosage: UNK
     Route: 065
     Dates: start: 20180729, end: 20180820
  26. ANCARON [Concomitant]
     Active Substance: AMIODARONE HYDROCHLORIDE
     Indication: POST PROCEDURAL COMPLICATION
  27. SOL-MELCORT [Concomitant]
     Active Substance: METHYLPREDNISOLONE SODIUM SUCCINATE
     Indication: CIRCULATORY COLLAPSE
     Dosage: UNK
     Route: 065
     Dates: start: 20180724, end: 20180726
  28. DIAMOX                             /00016901/ [Concomitant]
     Active Substance: ACETAZOLAMIDE
     Indication: PNEUMONIA ASPIRATION
     Dosage: UNK
     Route: 065
     Dates: start: 20180807, end: 20180810
  29. KAYTWO [Concomitant]
     Active Substance: MENATETRENONE
     Indication: PROCOAGULANT THERAPY
     Dosage: 30 MG, SINGLE
     Route: 065
     Dates: start: 20180723, end: 20180723
  30. FEBURIC [Concomitant]
     Active Substance: FEBUXOSTAT
     Indication: HYPERURICAEMIA
     Dosage: UNK
     Route: 065
     Dates: start: 20180807, end: 20180820
  31. DIAMOX                             /00016901/ [Concomitant]
     Active Substance: ACETAZOLAMIDE
     Dosage: UNK
     Route: 048
     Dates: start: 20180811, end: 20180815
  32. FINIBAX [Concomitant]
     Active Substance: DORIPENEM MONOHYDRATE
     Indication: PYREXIA
     Dosage: UNK
     Route: 065
     Dates: start: 20180818, end: 20180825
  33. HEPARIN [Concomitant]
     Active Substance: HEPARIN SODIUM
     Dosage: 20000 IU, QD
     Route: 065
     Dates: start: 20180731, end: 20180906
  34. AMIODARONE HYDROCHLORIDE. [Concomitant]
     Active Substance: AMIODARONE HYDROCHLORIDE
     Indication: POST PROCEDURAL COMPLICATION
     Dosage: UNK
     Route: 048
     Dates: start: 20180730
  35. REMINARON [Concomitant]
     Active Substance: GABEXATE MESYLATE
     Indication: DISSEMINATED INTRAVASCULAR COAGULATION
     Dosage: 1500 MG, UNK
     Route: 065
     Dates: start: 20180727, end: 20180801
  36. MILRINONE [Concomitant]
     Active Substance: MILRINONE
     Indication: CARDIAC FUNCTION DISTURBANCE POSTOPERATIVE
     Dosage: UNK
     Route: 065
     Dates: start: 20180725, end: 20180730
  37. FAMOTIDINE. [Concomitant]
     Active Substance: FAMOTIDINE
     Indication: STRESS ULCER
     Dosage: UNK
     Route: 065
     Dates: start: 20180723, end: 20180724
  38. RECOMODULIN [Concomitant]
     Active Substance: THROMBOMODULIN ALFA
     Dosage: 12800 IU, UNK
     Route: 065
     Dates: start: 20180729, end: 20180731
  39. DOBUPUM [Concomitant]
     Active Substance: DOBUTAMINE HYDROCHLORIDE
     Indication: CIRCULATORY COLLAPSE
     Dosage: UNK
     Route: 065
     Dates: start: 20180724, end: 20180727
  40. ONOACT [Concomitant]
     Active Substance: LANDIOLOL HYDROCHLORIDE
     Indication: TACHYARRHYTHMIA
     Dosage: UNK
     Route: 065
     Dates: start: 20180724, end: 20180726
  41. HEPARIN [Concomitant]
     Active Substance: HEPARIN SODIUM
     Indication: DISSEMINATED INTRAVASCULAR COAGULATION
     Dosage: 6000 IU, QD
     Route: 065
     Dates: start: 20180727, end: 20180727
  42. RISPERIDONE. [Concomitant]
     Active Substance: RISPERIDONE
     Indication: POSTOPERATIVE DELIRIUM
     Dosage: UNK
     Route: 065
     Dates: start: 20180730, end: 20180820
  43. NONTHRON [Concomitant]
     Indication: DISSEMINATED INTRAVASCULAR COAGULATION
     Dosage: 1500 IU, TOT
     Route: 065
     Dates: start: 20180727, end: 20180727
  44. LEVOFLOXACIN. [Suspect]
     Active Substance: LEVOFLOXACIN
     Indication: PNEUMONIA ASPIRATION
     Dosage: UNK
     Route: 065
     Dates: start: 20180810, end: 20180813
  45. LUNESTA [Concomitant]
     Active Substance: ESZOPICLONE
     Indication: POSTOPERATIVE DELIRIUM
     Dosage: UNK
     Route: 065
     Dates: start: 20180801, end: 20180820
  46. INOVAN                             /00360702/ [Concomitant]
     Active Substance: DOPAMINE HYDROCHLORIDE
     Indication: CIRCULATORY COLLAPSE
     Dosage: UNK
     Route: 065
     Dates: start: 20180724, end: 20180727
  47. ANCARON [Concomitant]
     Active Substance: AMIODARONE HYDROCHLORIDE
     Indication: VENTRICULAR FIBRILLATION
     Dosage: UNK
     Route: 065
     Dates: start: 20180724, end: 20180727
  48. CEFTRIAXONE SODIUM. [Concomitant]
     Active Substance: CEFTRIAXONE SODIUM
     Indication: C-REACTIVE PROTEIN INCREASED
     Dosage: UNK
     Route: 065
     Dates: start: 20180725, end: 20180730
  49. HEPARIN [Concomitant]
     Active Substance: HEPARIN SODIUM
     Dosage: 10000 IU, QD
     Route: 065
     Dates: start: 20180727, end: 20180728
  50. HEPARIN [Concomitant]
     Active Substance: HEPARIN SODIUM
     Dosage: 15000 IU, QD
     Route: 065
     Dates: start: 20180729, end: 20180730
  51. BISOPROLOL [Concomitant]
     Active Substance: BISOPROLOL
     Indication: HEART RATE INCREASED
  52. SAMSCA [Concomitant]
     Active Substance: TOLVAPTAN
     Dosage: UNK
     Route: 065
     Dates: start: 20180725, end: 20180815
  53. ZYPREXA [Concomitant]
     Active Substance: OLANZAPINE
     Indication: POSTOPERATIVE DELIRIUM
     Dosage: UNK
     Route: 048
     Dates: start: 20180815, end: 20180820
  54. POTASSIUM CHLORIDE. [Concomitant]
     Active Substance: POTASSIUM CHLORIDE
     Indication: HYPOKALAEMIA
     Dosage: UNK
     Route: 065
     Dates: start: 20180723, end: 20180724
  55. MEROPENEM. [Concomitant]
     Active Substance: MEROPENEM
     Indication: PNEUMONIA ASPIRATION
     Dosage: UNK
     Route: 065
     Dates: start: 20180801, end: 20180809
  56. BOSMIN                             /00003901/ [Concomitant]
     Active Substance: EPINEPHRINE
     Indication: CARDIAC ARREST
     Dosage: UNK
     Route: 065
     Dates: start: 20180724, end: 20180726
  57. BISOPROLOL [Concomitant]
     Active Substance: BISOPROLOL
     Indication: BLOOD PRESSURE INCREASED
     Dosage: UNK
     Route: 065
     Dates: start: 20180726
  58. DIAZEPAM. [Concomitant]
     Active Substance: DIAZEPAM
     Indication: POSTOPERATIVE DELIRIUM
     Dosage: UNK
     Route: 048
     Dates: start: 20180806, end: 20180814
  59. TULOBUTEROL [Concomitant]
     Active Substance: TULOBUTEROL
     Indication: PNEUMONIA ASPIRATION
     Dosage: UNK
     Route: 065
     Dates: start: 20180807, end: 20180814
  60. ARTIST [Concomitant]
     Active Substance: CARVEDILOL
     Dosage: UNK
     Route: 065
     Dates: start: 20180806, end: 20180820

REACTIONS (16)
  - Hypercoagulation [Recovered/Resolved]
  - Rash [Recovering/Resolving]
  - White blood cell count increased [Recovered/Resolved]
  - Disseminated intravascular coagulation [Recovered/Resolved]
  - Oropharyngeal candidiasis [Recovering/Resolving]
  - Rash [Recovered/Resolved]
  - Carbon dioxide increased [Recovered/Resolved]
  - Skin candida [Recovering/Resolving]
  - Pyrexia [Recovered/Resolved]
  - Acinetobacter infection [Recovered/Resolved]
  - Blood pressure decreased [Recovered/Resolved]
  - Genital rash [Unknown]
  - C-reactive protein increased [Recovered/Resolved]
  - Pneumonia aspiration [Recovered/Resolved]
  - Renal impairment [Unknown]
  - Hyperuricaemia [Recovered/Resolved]

NARRATIVE: CASE EVENT DATE: 20180725
